FAERS Safety Report 9450930 (Version 2)
Quarter: 2013Q3

REPORT INFORMATION
  Report Type: Spontaneous
  Country: IT (occurrence: None)
  Receive Date: 20130807
  Receipt Date: 20130926
  Transmission Date: 20140515
  Serious: Yes (Hospitalization)
  Sender: FDA-Public Use
  Company Number: AUR-APL-2013-06531

PATIENT
  Age: 63 Year
  Sex: Female

DRUGS (6)
  1. AMOXICILLIN (AMOXICILLIN) [Suspect]
     Indication: PRODUCT USED FOR UNKNOWN INDICATION
     Dosage: 1 DOSAGE FORMS, TOTAL, ORAL
     Route: 048
     Dates: start: 20130725, end: 20130725
  2. MEDIPO (SIMVASTATIN) [Concomitant]
  3. DEPAKIN (VALPROATE SODIUM) [Concomitant]
  4. ESAPENT (OMEGA-3 TRIGLYCERIDES) [Concomitant]
  5. SYCREST (ASENAPINE MALEATE) [Concomitant]
  6. DALMADORM (FLURAZEPAM HYDROCHLORIDE) [Concomitant]

REACTIONS (5)
  - Abdominal pain upper [None]
  - Face oedema [None]
  - Hypotension [None]
  - Nausea [None]
  - Pruritus [None]
